FAERS Safety Report 5522988-8 (Version None)
Quarter: 2007Q4

REPORT INFORMATION
  Report Type: 
  Country: None (occurrence: None)
  Receive Date: 20071121
  Receipt Date: 20071112
  Transmission Date: 20080405
  Serious: Yes (Other)
  Sender: FDA-Public Use
  Company Number: PHFR2007GB03319

PATIENT
  Age: 42 Year
  Sex: Male

DRUGS (3)
  1. GLEEVEC [Suspect]
     Indication: CHRONIC MYELOID LEUKAEMIA
     Dosage: 400MG
     Route: 048
     Dates: start: 20070412
  2. DICLOFENAC SODIUM [Concomitant]
     Dosage: 50MG
     Route: 048
  3. PROPRANOLOL [Concomitant]
     Indication: HYPERTENSION
     Dosage: 40MG
     Route: 048

REACTIONS (3)
  - HEADACHE [None]
  - HYPOAESTHESIA [None]
  - TUNNEL VISION [None]
